FAERS Safety Report 7103332-1 (Version None)
Quarter: 2010Q4

REPORT INFORMATION
  Report Type: 
  Country: None (occurrence: None)
  Receive Date: 20101115
  Receipt Date: 20101102
  Transmission Date: 20110411
  Serious: Yes (Hospitalization)
  Sender: FDA-Public Use
  Company Number: PHHY2010US74115

PATIENT
  Age: 67 Year
  Sex: Female
  Weight: 67.12 kg

DRUGS (2)
  1. ZOMETA [Suspect]
     Dosage: 04 MG ONCE A MONTH
     Route: 042
     Dates: start: 20030621, end: 20100819
  2. FASLODEX [Concomitant]

REACTIONS (1)
  - FEMUR FRACTURE [None]
